FAERS Safety Report 7134604-2 (Version None)
Quarter: 2010Q4

REPORT INFORMATION
  Report Type: 
  Country: None (occurrence: None)
  Receive Date: 20101130
  Receipt Date: 20101130
  Transmission Date: 20110411
  Serious: Yes (Hospitalization)
  Sender: FDA-Public Use
  Company Number: None

PATIENT
  Age: 54 Year
  Sex: Male
  Weight: 96 kg

DRUGS (9)
  1. CUBICIN [Suspect]
     Indication: EXTRADURAL ABSCESS
     Dosage: 500 MG Q 24 HOURS IV BOLUS
     Route: 040
     Dates: start: 20100921, end: 20101027
  2. ROCEPHIN [Concomitant]
  3. FISH OIL [Concomitant]
  4. PRILOSEC [Concomitant]
  5. LISINOPRIL AND HYDROCHLOROTHIAZIDE [Concomitant]
  6. ASPIRIN [Concomitant]
  7. ACIDOPHILLUS [Concomitant]
  8. LORTAB [Concomitant]
  9. CLARITIN [Concomitant]

REACTIONS (1)
  - EOSINOPHILIC PNEUMONIA [None]
